FAERS Safety Report 12982651 (Version 1)
Quarter: 2016Q4

REPORT INFORMATION
  Report Type: Spontaneous
  Country: US (occurrence: US)
  Receive Date: 20161129
  Receipt Date: 20161129
  Transmission Date: 20170207
  Serious: No
  Sender: FDA-Public Use
  Company Number: US-GLAXOSMITHKLINE-US2016174331

PATIENT
  Sex: Female

DRUGS (6)
  1. IBUPROFEN. [Concomitant]
     Active Substance: IBUPROFEN
  2. ZYRTEC [Concomitant]
     Active Substance: CETIRIZINE HYDROCHLORIDE
  3. HYDROCHLOROTHIAZIDE + LISINOPRIL [Concomitant]
     Active Substance: HYDROCHLOROTHIAZIDE\LISINOPRIL
  4. FERROUS SULFATE. [Concomitant]
     Active Substance: FERROUS SULFATE
  5. ALBUTEROL. [Concomitant]
     Active Substance: ALBUTEROL
  6. FLONASE [Suspect]
     Active Substance: FLUTICASONE PROPIONATE
     Indication: MULTIPLE ALLERGIES
     Dosage: UNK, QD
     Dates: start: 201605, end: 201610

REACTIONS (1)
  - Anosmia [Unknown]
